FAERS Safety Report 15860779 (Version 2)
Quarter: 2019Q1

REPORT INFORMATION
  Report Type: Spontaneous
  Country: US (occurrence: US)
  Receive Date: 20190124
  Receipt Date: 20190308
  Transmission Date: 20190417
  Serious: No
  Sender: FDA-Public Use
  Company Number: US-ASTRAZENECA-2019SE12588

PATIENT
  Sex: Female
  Weight: 127.9 kg

DRUGS (3)
  1. PULMICORT FLEXHALER [Suspect]
     Active Substance: BUDESONIDE
     Indication: ASTHMA
     Dosage: 120 DOSE INHALER, 180 MCG 2 PUFFS TWICE A DAY
     Route: 055
     Dates: start: 20181201
  2. METOPROLOL TARTRATE. [Suspect]
     Active Substance: METOPROLOL TARTRATE
     Indication: ARRHYTHMIA
     Dosage: TWO TIMES A DAY
     Route: 065
  3. PULMICORT FLEXHALER [Suspect]
     Active Substance: BUDESONIDE
     Indication: ASTHMA
     Route: 055

REACTIONS (5)
  - Product dose omission [Unknown]
  - Product label issue [Unknown]
  - Intentional product misuse [Unknown]
  - Drug ineffective [Unknown]
  - Device failure [Unknown]
